FAERS Safety Report 5515114-2 (Version None)
Quarter: 2007Q4

REPORT INFORMATION
  Report Type: 
  Country: None (occurrence: None)
  Receive Date: 20071113
  Receipt Date: 20070109
  Transmission Date: 20080405
  Serious: No
  Sender: FDA-Public Use
  Company Number: A0634929A

PATIENT
  Age: 72 Year
  Sex: Female

DRUGS (4)
  1. COREG [Suspect]
     Indication: HYPERTENSION
     Dosage: 3.125MCG PER DAY
     Route: 048
     Dates: start: 20060104
  2. AVANDIA [Concomitant]
  3. GLUCOPHAGE [Concomitant]
  4. PRAVACHOL [Concomitant]

REACTIONS (2)
  - CHEST PAIN [None]
  - FATIGUE [None]
